FAERS Safety Report 8175830-3 (Version None)
Quarter: 2012Q1

REPORT INFORMATION
  Report Type: 
  Country: None (occurrence: None)
  Receive Date: 20120228
  Receipt Date: 20120228
  Transmission Date: 20120608
  Serious: No
  Sender: FDA-Public Use
  Company Number: None

PATIENT
  Sex: Female
  Weight: 84.369 kg

DRUGS (2)
  1. LEVOTHYROXINE SODIUM [Suspect]
     Indication: HYPOTHYROIDISM
     Dosage: 75 MCGM. DAILY PO
     Route: 048
     Dates: start: 20030101
  2. LEVOTHYROXINE SODIUM [Suspect]
     Indication: HYPOTHYROIDISM
     Dosage: 75 MCGM. DAILY PO
     Route: 048
     Dates: start: 20070101

REACTIONS (2)
  - PRODUCT SUBSTITUTION ISSUE [None]
  - FATIGUE [None]
